FAERS Safety Report 7800554 (Version 3)
Quarter: 2013Q1

REPORT INFORMATION
  Report Type: Spontaneous
  Country: US (occurrence: US)
  Receive Date: 20110204
  Receipt Date: 20130104
  Transmission Date: 20140127
  Serious: Yes (Other)
  Sender: FDA-Public Use
  Company Number: US-ASTRAZENECA-2010SE11909

PATIENT
  Age: 58 Year
  Sex: Female

DRUGS (2)
  1. ZOMIG [Suspect]
     Indication: MIGRAINE
     Dosage: TAKE ONE TABLET BY MOUTH AT ONSET OF HEADACHE, MAY REPEAT ONCE AFTER TWO HOURS IF HEADACHE RETURNS
     Route: 048
  2. FLU SHOT [Concomitant]
     Dates: start: 20100923

REACTIONS (14)
  - Physical disability [Unknown]
  - Migraine [Recovered/Resolved]
  - Disturbance in attention [Unknown]
  - Amnesia [Unknown]
  - Visual impairment [Unknown]
  - Malaise [Unknown]
  - Nasopharyngitis [Unknown]
  - Tinea pedis [Unknown]
  - Rash [Recovering/Resolving]
  - Musculoskeletal discomfort [Unknown]
  - Nausea [Unknown]
  - Vomiting [Unknown]
  - Asthenia [Unknown]
  - Intentional drug misuse [Unknown]
